FAERS Safety Report 17473246 (Version 1)
Quarter: 2020Q1

REPORT INFORMATION
  Report Type: Report from Study
  Country: US (occurrence: US)
  Receive Date: 20200228
  Receipt Date: 20200228
  Transmission Date: 20200409
  Serious: Yes (Death, Hospitalization)
  Sender: FDA-Public Use
  Company Number: US-TORRENT-00009962

PATIENT
  Age: 39 Year
  Sex: Male

DRUGS (2)
  1. FLUORINATED HYDROCARBON [Suspect]
     Active Substance: UNSPECIFIED INGREDIENT
     Indication: PRODUCT USED FOR UNKNOWN INDICATION
     Dosage: UNKNOWN
  2. BUPROPION. [Suspect]
     Active Substance: BUPROPION
     Indication: PRODUCT USED FOR UNKNOWN INDICATION
     Dosage: APPROXIMATELY 46 BUPROPION TABLETS
     Route: 048

REACTIONS (9)
  - Cardiac arrest [Fatal]
  - Toxicity to various agents [Fatal]
  - Arrhythmia [Fatal]
  - Myoclonus [Unknown]
  - Completed suicide [Fatal]
  - Seizure [Unknown]
  - Brain injury [Unknown]
  - Tremor [Unknown]
  - Intentional overdose [Fatal]
